FAERS Safety Report 23335819 (Version 5)
Quarter: 2024Q1

REPORT INFORMATION
  Report Type: Report from Study
  Country: BE (occurrence: BE)
  Receive Date: 20231225
  Receipt Date: 20240319
  Transmission Date: 20240409
  Serious: Yes (Hospitalization)
  Sender: FDA-Public Use
  Company Number: BE-PHARMAMAR-2023PM000916

PATIENT

DRUGS (13)
  1. LURBINECTEDIN [Suspect]
     Active Substance: LURBINECTEDIN
     Indication: Small cell lung cancer
     Dosage: 2 MILLIGRAM/SQ. METER, Q3W
     Route: 042
     Dates: start: 20231120, end: 20231120
  2. IRINOTECAN [Suspect]
     Active Substance: IRINOTECAN
     Indication: Small cell lung cancer
     Dosage: 75 MILLIGRAM/SQ. METER, Q3W
     Route: 042
     Dates: start: 20231120, end: 20231127
  3. LEVOCETIRIZINE DIHYDROCHLORIDE [Concomitant]
     Active Substance: LEVOCETIRIZINE DIHYDROCHLORIDE
     Indication: Rhinorrhoea
     Dosage: 5 MILLIGRAM, QD
     Route: 048
     Dates: start: 2010
  4. CHOLECALCIFEROL [Concomitant]
     Active Substance: CHOLECALCIFEROL
     Indication: Vitamin D deficiency
     Dosage: 1 DOSAGE FORM, Q4W
     Route: 048
     Dates: start: 2017
  5. PREGABALIN [Concomitant]
     Active Substance: PREGABALIN
     Indication: Back pain
     Dosage: 75 MILLIGRAM, TID
     Route: 048
     Dates: start: 202006
  6. RIVOTRIL [Concomitant]
     Active Substance: CLONAZEPAM
     Indication: Back pain
     Dosage: 0.25 MILLIGRAM, QD
     Route: 048
     Dates: start: 202006
  7. ANORO ELLIPTA [Concomitant]
     Active Substance: UMECLIDINIUM BROMIDE\VILANTEROL TRIFENATATE
     Indication: Asthma
     Dosage: 1 DOSAGE FORM, QD, RESPIRATORY
     Dates: start: 202305
  8. CALCIUM CARBONATE [Concomitant]
     Active Substance: CALCIUM CARBONATE
     Indication: Metastases to bone
     Dosage: 1000 MILLIGRAM, QD
     Route: 048
     Dates: start: 202305
  9. D VITAL [CALCIUM CARBONATE;COLECALCIFEROL] [Concomitant]
     Indication: Metastases to bone
     Dosage: 1 DOSAGE FORM, QD
     Route: 048
     Dates: start: 202305
  10. PANTOPRAZOLE [Concomitant]
     Active Substance: PANTOPRAZOLE
     Indication: Gastrooesophageal reflux disease
     Dosage: 40 MILLIGRAM, QD
     Route: 048
     Dates: start: 202305
  11. XGEVA [Concomitant]
     Active Substance: DENOSUMAB
     Indication: Metastases to bone
     Dosage: 120 MILLIGRAM, Q4W
     Route: 058
     Dates: start: 202305
  12. DEXAMETHASONE [Concomitant]
     Active Substance: DEXAMETHASONE
     Indication: Prophylaxis of nausea and vomiting
     Dosage: 8 MILLIGRAM, QD
     Route: 048
     Dates: start: 20231128, end: 20231129
  13. TADALAFIL [Concomitant]
     Active Substance: TADALAFIL
     Indication: Benign prostatic hyperplasia
     Dosage: 5 MILLIGRAM, QD
     Route: 048
     Dates: start: 20231211

REACTIONS (1)
  - Cellulitis [Recovered/Resolved]

NARRATIVE: CASE EVENT DATE: 20231214
